FAERS Safety Report 8481003-7 (Version None)
Quarter: 2012Q3

REPORT INFORMATION
  Report Type: 
  Country: None (occurrence: None)
  Receive Date: 20120702
  Receipt Date: 20120621
  Transmission Date: 20120928
  Serious: Yes (Hospitalization)
  Sender: FDA-Public Use
  Company Number: US-ELI_LILLY_AND_COMPANY-US201206007755

PATIENT
  Age: 86 Year
  Sex: Female

DRUGS (1)
  1. FORTEO [Suspect]
     Indication: UPPER LIMB FRACTURE
     Dosage: UNK
     Dates: start: 20120415, end: 20120515

REACTIONS (2)
  - HOSPITALISATION [None]
  - OFF LABEL USE [None]
